FAERS Safety Report 5208294-X (Version None)
Quarter: 2007Q1

REPORT INFORMATION
  Report Type: 
  Country: None (occurrence: None)
  Receive Date: 20070110
  Receipt Date: 20070110
  Transmission Date: 20070707
  Serious: Yes (Other)
  Sender: FDA-Public Use
  Company Number: None

PATIENT
  Age: 68 Year
  Sex: Female
  Weight: 64.8644 kg

DRUGS (2)
  1. ALPRAZOLAM [Suspect]
     Indication: ANXIETY DISORDER
     Dosage: ONE TABLET PO 6 X DAY
     Route: 048
  2. XANAX [Concomitant]

REACTIONS (5)
  - AGITATION [None]
  - ANXIETY [None]
  - DEPRESSION [None]
  - PHARMACEUTICAL PRODUCT COMPLAINT [None]
  - THERAPEUTIC RESPONSE UNEXPECTED WITH DRUG SUBSTITUTION [None]
